APPROVED DRUG PRODUCT: ISOLYTE S IN PLASTIC CONTAINER
Active Ingredient: MAGNESIUM CHLORIDE; POTASSIUM CHLORIDE; SODIUM ACETATE; SODIUM CHLORIDE; SODIUM GLUCONATE
Strength: 30MG/100ML;37MG/100ML;370MG/100ML;530MG/100ML;500MG/100ML
Dosage Form/Route: INJECTABLE;INJECTION
Application: N018252 | Product #001
Applicant: B BRAUN MEDICAL INC
Approved: Approved Prior to Jan 1, 1982 | RLD: No | RS: No | Type: DISCN